FAERS Safety Report 8282471-6 (Version None)
Quarter: 2012Q2

REPORT INFORMATION
  Report Type: 
  Country: None (occurrence: None)
  Receive Date: 20120413
  Receipt Date: 20120411
  Transmission Date: 20120825
  Serious: Yes (Hospitalization, Other)
  Sender: FDA-Public Use
  Company Number: VE-PFIZER INC-2012068769

PATIENT
  Age: 73 Year
  Sex: Female

DRUGS (3)
  1. CORASPIN [Concomitant]
     Indication: ANTIPLATELET THERAPY
     Dosage: 81 MG, 1X/DAY
     Route: 048
     Dates: start: 20090101
  2. ENALAPRIL [Concomitant]
     Indication: HYPERTENSION
     Dosage: 10 MG, 1X/DAY
     Route: 048
     Dates: start: 20090101
  3. LIPITOR [Suspect]
     Indication: HYPERCHOLESTEROLAEMIA
     Dosage: 40 MG, 1X/DAY
     Route: 048
     Dates: start: 20090101

REACTIONS (2)
  - CARDIAC DISORDER [None]
  - VOMITING [None]
